FAERS Safety Report 16766640 (Version 1)
Quarter: 2019Q3

REPORT INFORMATION
  Report Type: Spontaneous
  Country: US (occurrence: US)
  Receive Date: 20190903
  Receipt Date: 20190903
  Transmission Date: 20191005
  Serious: Yes (Other)
  Sender: FDA-Public Use
  Company Number: US-PFIZER INC-2019370991

PATIENT
  Age: 39 Year
  Sex: Female

DRUGS (2)
  1. INLYTA [Suspect]
     Active Substance: AXITINIB
     Dosage: UNK UNK, 2X/DAY [5 BID]
  2. INLYTA [Suspect]
     Active Substance: AXITINIB
     Dosage: 3 MG, 2X/DAY [1MG TAKE 3 TABLETS BY MOUTH EVERY 12 HOURS]
     Route: 048

REACTIONS (13)
  - Diarrhoea [Unknown]
  - Headache [Unknown]
  - Alopecia [Unknown]
  - Decreased appetite [Unknown]
  - Abdominal pain upper [Unknown]
  - Weight decreased [Unknown]
  - Vomiting [Unknown]
  - Vision blurred [Unknown]
  - Hypertension [Recovered/Resolved]
  - Dizziness [Unknown]
  - Nausea [Unknown]
  - Acne [Unknown]
  - Hand-foot-and-mouth disease [Unknown]
